FAERS Safety Report 5092965-2 (Version None)
Quarter: 2006Q3

REPORT INFORMATION
  Report Type: 
  Country: None (occurrence: None)
  Receive Date: 20060830
  Receipt Date: 20060817
  Transmission Date: 20061208
  Serious: Yes (Other)
  Sender: FDA-Public Use
  Company Number: GB-BRISTOL-MYERS SQUIBB COMPANY-13479472

PATIENT
  Age: 69 Year
  Sex: Female

DRUGS (2)
  1. PRAVASTATIN SODIUM [Suspect]
     Indication: BLOOD CHOLESTEROL INCREASED
     Route: 048
     Dates: start: 20060614, end: 20060701
  2. ASPIRIN [Concomitant]
     Route: 048
     Dates: start: 20010101

REACTIONS (3)
  - COORDINATION ABNORMAL [None]
  - DIZZINESS [None]
  - DYSPNOEA [None]
